FAERS Safety Report 10267241 (Version 1)
Quarter: 2014Q2

REPORT INFORMATION
  Report Type: Spontaneous
  Country: IN (occurrence: IN)
  Receive Date: 20140630
  Receipt Date: 20140630
  Transmission Date: 20141212
  Serious: Yes (Other)
  Sender: FDA-Public Use
  Company Number: IN-ROCHE-1422070

PATIENT
  Age: 6 Week
  Sex: 0
  Weight: 1.08 kg

DRUGS (1)
  1. BEVACIZUMAB [Suspect]
     Indication: RETINOPATHY OF PREMATURITY
     Dosage: (0.66MGM)
     Route: 050

REACTIONS (3)
  - Retinal ischaemia [Unknown]
  - Retinal pigment epithelial tear [Unknown]
  - Off label use [Unknown]
